FAERS Safety Report 17270606 (Version 2)
Quarter: 2020Q1

REPORT INFORMATION
  Report Type: Report from Study
  Country: JP (occurrence: JP)
  Receive Date: 20200114
  Receipt Date: 20200205
  Transmission Date: 20200409
  Serious: Yes (Hospitalization)
  Sender: FDA-Public Use
  Company Number: JP-ELI_LILLY_AND_COMPANY-JP202001005234

PATIENT
  Age: 61 Year
  Sex: Male
  Weight: 55 kg

DRUGS (10)
  1. CETUXIMAB. [Suspect]
     Active Substance: CETUXIMAB
     Indication: SQUAMOUS CELL CARCINOMA OF HEAD AND NECK
     Dosage: 400 MG/M2, UNKNOWN
     Route: 041
     Dates: start: 20190815
  2. CISPLATIN. [Concomitant]
     Active Substance: CISPLATIN
     Indication: SQUAMOUS CELL CARCINOMA OF HEAD AND NECK
     Dosage: 75 MG/M2, UNKNOWN
     Route: 042
     Dates: start: 20190815
  3. MINOCYCLINE HYDROCHLORIDE. [Concomitant]
     Active Substance: MINOCYCLINE HYDROCHLORIDE
     Indication: PROPHYLAXIS
     Dosage: UNK (3 TABLETS IN 3 DIVIDED DOSES AFTER EACH MEAL)
     Route: 048
     Dates: start: 20190815
  4. CETUXIMAB. [Suspect]
     Active Substance: CETUXIMAB
     Dosage: 250 MG/M2, WEEKLY (1/W)
     Route: 042
     Dates: end: 20191210
  5. ZINC. [Concomitant]
     Active Substance: ZINC
     Indication: TASTE DISORDER
     Dosage: UNK UNK, UNKNOWN
     Route: 048
     Dates: start: 20191202
  6. MIYA-BM [Concomitant]
     Active Substance: CLOSTRIDIUM BUTYRICUM SPORES STRAIN M-55
     Indication: GASTROINTESTINAL DISORDER
     Dosage: UNK (3 TABLETS IN 3 DIVIDED DOSES AFTER EACH MEAL)
     Route: 048
     Dates: start: 20191211
  7. FLUOROURACIL. [Concomitant]
     Active Substance: FLUOROURACIL
     Indication: SQUAMOUS CELL CARCINOMA OF HEAD AND NECK
     Dosage: 3000 MG/M2, UNKNOWN (96H IN CONTINUOUS INFUSION)
     Route: 042
     Dates: start: 20190815
  8. FLUOROURACIL. [Concomitant]
     Active Substance: FLUOROURACIL
     Dosage: 963 MG, UNKNOWN
     Route: 042
     Dates: end: 20191214
  9. K SUPPLY [Concomitant]
     Active Substance: POTASSIUM CHLORIDE
     Indication: HYPOKALAEMIA
     Dosage: UNK (2 TABLETS IN 2 DIVIDED DOSES AFTER BREAKFAST AND DINNER)
     Route: 048
     Dates: start: 20191218, end: 20200109
  10. CARBOPLATIN. [Concomitant]
     Active Substance: CARBOPLATIN
     Indication: SQUAMOUS CELL CARCINOMA OF HEAD AND NECK
     Dosage: 640 MG, UNKNOWN
     Dates: start: 20191210, end: 20191210

REACTIONS (3)
  - Febrile neutropenia [Not Recovered/Not Resolved]
  - Platelet count decreased [Recovered/Resolved with Sequelae]
  - Anaemia [Recovered/Resolved]

NARRATIVE: CASE EVENT DATE: 20191221
